FAERS Safety Report 23054589 (Version 3)
Quarter: 2023Q4

REPORT INFORMATION
  Report Type: Spontaneous
  Country: US (occurrence: US)
  Receive Date: 20231011
  Receipt Date: 20231122
  Transmission Date: 20240110
  Serious: Yes (Other)
  Sender: FDA-Public Use
  Company Number: US-COOPERSURGICAL, INC.-US-2023CPS003162

PATIENT
  Age: 37 Year
  Sex: Female
  Weight: 73.016 kg

DRUGS (1)
  1. PARAGARD T 380A [Suspect]
     Active Substance: COPPER
     Indication: Contraception
     Dosage: UNK
     Route: 015
     Dates: start: 20180710, end: 20230111

REACTIONS (6)
  - Premature delivery [Recovered/Resolved]
  - Pregnancy with contraceptive device [Recovered/Resolved]
  - Intermenstrual bleeding [Recovered/Resolved]
  - Muscle spasms [Recovered/Resolved]
  - Device expulsion [Recovered/Resolved]
  - Drug ineffective [Unknown]

NARRATIVE: CASE EVENT DATE: 20190923
